FAERS Safety Report 5758101-1 (Version None)
Quarter: 2008Q2

REPORT INFORMATION
  Report Type: 
  Country: None (occurrence: None)
  Receive Date: 20080530
  Receipt Date: 20080129
  Transmission Date: 20081010
  Serious: Yes (Hospitalization)
  Sender: FDA-Public Use
  Company Number: 8029774

PATIENT
  Age: 16 Month
  Sex: Male

DRUGS (1)
  1. VITAMIN D [Suspect]

REACTIONS (7)
  - BLOOD 1,25-DIHYDROXYCHOLECALCIFEROL INCREASED [None]
  - BLOOD 25-HYDROXYCHOLECALCIFEROL INCREASED [None]
  - CONSTIPATION [None]
  - HYPERCALCAEMIA [None]
  - INCORRECT DOSE ADMINISTERED [None]
  - IRRITABILITY [None]
  - VOMITING [None]
